FAERS Safety Report 10033320 (Version 1)
Quarter: 2014Q1

REPORT INFORMATION
  Report Type: Spontaneous
  Country: GB (occurrence: GB)
  Receive Date: 20140325
  Receipt Date: 20140325
  Transmission Date: 20141002
  Serious: Yes (Congenital Anomaly)
  Sender: FDA-Public Use
  Company Number: PHFR2014GB002219

PATIENT
  Sex: Female
  Weight: 3.76 kg

DRUGS (7)
  1. XOLAIR [Suspect]
     Indication: ASTHMA
     Dosage: MATERNAL DOSE 600 MG
     Route: 064
  2. THEOPHYLLINE [Suspect]
     Indication: ASTHMA
     Dosage: METERNAL DOSE 500 MG, UNK
     Route: 064
  3. MONTELUKAST SODIUM [Suspect]
     Dosage: METERNAL DOSE 10 MG, QD
     Route: 064
  4. ALENDRONIC ACID [Suspect]
     Dosage: UNK
     Route: 064
  5. FEXOFENADINE [Suspect]
     Indication: ASTHMA
     Dosage: METERNAL DOSE 180 MG, UNK
     Route: 064
  6. SYMBICORT [Suspect]
     Indication: ASTHMA
     Dosage: UNK
     Route: 064
  7. SPIRIVA [Suspect]
     Indication: ASTHMA
     Dosage: UNK
     Route: 064

REACTIONS (2)
  - Hearing impaired [Unknown]
  - Foetal exposure during pregnancy [Unknown]
